FAERS Safety Report 24707948 (Version 1)
Quarter: 2024Q4

REPORT INFORMATION
  Report Type: Spontaneous
  Country: JP (occurrence: JP)
  Receive Date: 20241206
  Receipt Date: 20241206
  Transmission Date: 20250115
  Serious: Yes (Other)
  Sender: ELI LILLY AND COMPANY
  Company Number: JP-ELI_LILLY_AND_COMPANY-JP202412000548

PATIENT
  Sex: Female

DRUGS (2)
  1. OLUMIANT [Suspect]
     Active Substance: BARICITINIB
     Indication: Chronic spontaneous urticaria
     Dosage: 4 MG, DAILY
     Route: 048
  2. OLUMIANT [Suspect]
     Active Substance: BARICITINIB
     Dosage: 4 MG, DAILY
     Route: 048

REACTIONS (3)
  - Jaundice [Unknown]
  - Off label use [Unknown]
  - Liver function test increased [Unknown]

NARRATIVE: CASE EVENT DATE: 20241108
